FAERS Safety Report 9170700 (Version 2)
Quarter: 2013Q1

REPORT INFORMATION
  Report Type: Report from Study
  Country: FR (occurrence: FR)
  Receive Date: 20130319
  Receipt Date: 20130329
  Transmission Date: 20140127
  Serious: Yes (Other)
  Sender: FDA-Public Use
  Company Number: FR-SANOFI-AVENTIS-2013SA026134

PATIENT
  Age: 64 Year
  Sex: Female

DRUGS (14)
  1. AFLIBERCEPT [Suspect]
     Indication: COLORECTAL CANCER METASTATIC
     Route: 042
     Dates: start: 20130108, end: 20130108
  2. 5-FU [Suspect]
     Indication: COLORECTAL CANCER METASTATIC
     Route: 040
     Dates: start: 20130108, end: 20130108
  3. 5-FU [Suspect]
     Indication: COLORECTAL CANCER METASTATIC
     Route: 041
     Dates: start: 20130108, end: 20130108
  4. 5-FU [Suspect]
     Indication: COLORECTAL CANCER METASTATIC
     Route: 040
     Dates: start: 20130128, end: 20130128
  5. 5-FU [Suspect]
     Indication: COLORECTAL CANCER METASTATIC
     Route: 041
     Dates: start: 20130128, end: 20130128
  6. IRINOTECAN [Suspect]
     Indication: COLORECTAL CANCER METASTATIC
     Route: 042
     Dates: start: 20130108, end: 20130108
  7. IRINOTECAN [Suspect]
     Indication: COLORECTAL CANCER METASTATIC
     Route: 042
     Dates: start: 20130128, end: 20130128
  8. LEUCOVORIN [Suspect]
     Indication: COLORECTAL CANCER METASTATIC
     Route: 042
     Dates: start: 20130108, end: 20130108
  9. LEUCOVORIN [Suspect]
     Indication: COLORECTAL CANCER METASTATIC
     Route: 042
     Dates: start: 20130128, end: 20130128
  10. ANALGESICS [Concomitant]
     Indication: PROPHYLAXIS
     Dates: start: 2012
  11. LEXOMIL [Concomitant]
     Indication: PROPHYLAXIS
     Dates: start: 2012
  12. ANGIOTENSIN II ANTAGONISTS [Concomitant]
     Indication: PROPHYLAXIS
     Dates: start: 20130122
  13. SEROPLEX [Concomitant]
     Indication: PROPHYLAXIS
     Dates: start: 2012
  14. DIFFU K [Concomitant]
     Indication: PROPHYLAXIS
     Dates: start: 2012

REACTIONS (1)
  - Blood alkaline phosphatase increased [Not Recovered/Not Resolved]
